FAERS Safety Report 5146179-8 (Version None)
Quarter: 2006Q4

REPORT INFORMATION
  Report Type: 
  Country: None (occurrence: None)
  Receive Date: 20061108
  Receipt Date: 20060822
  Transmission Date: 20070319
  Serious: Yes (Other)
  Sender: FDA-Public Use
  Company Number: CA-ELI_LILLY_AND_COMPANY-CA200608005894

PATIENT
  Age: 61 Year
  Sex: Female

DRUGS (10)
  1. FORTEO [Suspect]
     Indication: OSTEOPOROSIS
     Dosage: 20 UG, DAILY (1/D)
     Dates: start: 20060719, end: 20060801
  2. DILANTIN [Concomitant]
  3. FRISIUM [Concomitant]
  4. TOPAMAX                                 /AUS/ [Concomitant]
  5. LIPITOR [Concomitant]
  6. LEVOTHYROXINE SODIUM [Concomitant]
  7. ASPIRIN [Concomitant]
     Dosage: 81 MG, UNK
  8. TUMS [Concomitant]
  9. VITAMIN D [Concomitant]
  10. ACETAMINOPHEN [Concomitant]
     Dosage: UNK, AS NEEDED

REACTIONS (3)
  - ARTHRALGIA [None]
  - CONVULSION [None]
  - MOBILITY DECREASED [None]
